FAERS Safety Report 25808632 (Version 1)
Quarter: 2025Q3

REPORT INFORMATION
  Report Type: Spontaneous
  Country: EU (occurrence: EU)
  Receive Date: 20250916
  Receipt Date: 20250916
  Transmission Date: 20251021
  Serious: Yes (Other)
  Sender: ROCHE
  Company Number: None

PATIENT
  Age: 80 Year
  Sex: Female
  Weight: 74 kg

DRUGS (3)
  1. ALTEPLASE [Suspect]
     Active Substance: ALTEPLASE
     Indication: Ischaemic stroke
     Route: 042
     Dates: start: 20240731, end: 20240731
  2. ALTEPLASE [Suspect]
     Active Substance: ALTEPLASE
     Route: 042
     Dates: start: 20240731, end: 20240731
  3. ACETAMINOPHEN [Concomitant]
     Active Substance: ACETAMINOPHEN
     Indication: Pain
     Route: 042
     Dates: start: 20240731, end: 20240731

REACTIONS (3)
  - Petit mal epilepsy [Recovered/Resolved]
  - Activated partial thromboplastin time prolonged [Recovered/Resolved]
  - Prothrombin time ratio decreased [Recovered/Resolved]

NARRATIVE: CASE EVENT DATE: 20240731
